FAERS Safety Report 4639164-3 (Version None)
Quarter: 2005Q2

REPORT INFORMATION
  Report Type: 
  Country: None (occurrence: None)
  Receive Date: 20050418
  Receipt Date: 20050407
  Transmission Date: 20051028
  Serious: No
  Sender: FDA-Public Use
  Company Number: 2005-03-0306

PATIENT
  Age: 62 Year
  Sex: Male
  Weight: 67 kg

DRUGS (6)
  1. PEG-INTRON [Suspect]
     Indication: HEPATITIS C
     Dosage: 100 MIU QW SUBCUTANEOUS
     Route: 058
     Dates: start: 20050128, end: 20050223
  2. REBETOL [Suspect]
     Indication: HEPATITIS C
     Dosage: 800 MG ORAL
     Route: 048
     Dates: start: 20050128, end: 20050226
  3. URSO TABLETS [Concomitant]
  4. ZOPICLONE TABLETS [Concomitant]
  5. TRANDOLAPRIL TABLETS [Concomitant]
  6. AMARYL [Concomitant]

REACTIONS (4)
  - GENERALISED ERYTHEMA [None]
  - INJECTION SITE ERYTHEMA [None]
  - INJECTION SITE PRURITUS [None]
  - RASH MACULO-PAPULAR [None]
